FAERS Safety Report 7651457-4 (Version None)
Quarter: 2011Q3

REPORT INFORMATION
  Report Type: 
  Country: None (occurrence: None)
  Receive Date: 20110802
  Receipt Date: 20110728
  Transmission Date: 20111222
  Serious: Yes (Hospitalization, Disabling, Other)
  Sender: FDA-Public Use
  Company Number: PHHO2011FR12983

PATIENT
  Sex: Female
  Weight: 63 kg

DRUGS (4)
  1. TASIGNA [Suspect]
     Indication: CHRONIC MYELOID LEUKAEMIA
     Dosage: 800 MG, DAILY
     Route: 048
     Dates: start: 20110602, end: 20110613
  2. SIMVASTATIN [Concomitant]
     Indication: DYSLIPIDAEMIA
     Dosage: UNK
     Dates: start: 20110103
  3. DESLORATADINE [Concomitant]
     Indication: PRURITUS
     Dosage: 5 MG, PRN
     Dates: start: 20101115
  4. ASPIRIN [Concomitant]
     Indication: ARTERIAL DISORDER
     Dosage: 75 MG, DAILY
     Dates: start: 20101127

REACTIONS (1)
  - ARTERIAL DISORDER [None]
